FAERS Safety Report 6375178-3 (Version None)
Quarter: 2009Q3

REPORT INFORMATION
  Report Type: 
  Country: None (occurrence: None)
  Receive Date: 20090922
  Receipt Date: 20090922
  Transmission Date: 20100115
  Serious: Yes (Life-Threatening, Hospitalization)
  Sender: FDA-Public Use
  Company Number: None

PATIENT
  Age: 66 Year
  Sex: Male
  Weight: 48.22 kg

DRUGS (18)
  1. GEMCITABINE [Suspect]
  2. OXALIPLATIN [Suspect]
  3. ALPRAXOLAM [Concomitant]
  4. DRONABINOL [Concomitant]
  5. MORPHINE SULFATE [Concomitant]
  6. OMEPRAZOLE [Concomitant]
  7. MIRALAX [Concomitant]
  8. COMPAZINE [Concomitant]
  9. SENOKOT [Concomitant]
  10. TRAMADOL [Concomitant]
  11. ACTIGALL [Concomitant]
  12. PCA EPIDURAL [Concomitant]
  13. INSULIN [Concomitant]
  14. FLAGYL [Concomitant]
  15. POTASSIUM CHLORIDE [Concomitant]
  16. TYLENOL (CAPLET) [Concomitant]
  17. HEPARIN [Concomitant]
  18. REGLAN [Concomitant]

REACTIONS (6)
  - BLOOD PRESSURE SYSTOLIC INCREASED [None]
  - CARDIAC DISORDER [None]
  - ELECTROCARDIOGRAM ST SEGMENT ELEVATION [None]
  - MYOCARDIAL INFARCTION [None]
  - MYOCARDIAL ISCHAEMIA [None]
  - SINUS TACHYCARDIA [None]
